FAERS Safety Report 8059467-2 (Version None)
Quarter: 2012Q1

REPORT INFORMATION
  Report Type: 
  Country: None (occurrence: None)
  Receive Date: 20120120
  Receipt Date: 20120117
  Transmission Date: 20120608
  Serious: Yes (Hospitalization)
  Sender: FDA-Public Use
  Company Number: GB-ROCHE-1030872

PATIENT
  Sex: Female

DRUGS (2)
  1. STEROIDS - UNKNOWN TYPE [Concomitant]
  2. MABTHERA [Suspect]
     Indication: RHEUMATOID ARTHRITIS
     Dates: start: 20110112

REACTIONS (1)
  - DEEP VEIN THROMBOSIS [None]
